FAERS Safety Report 10997567 (Version 13)
Quarter: 2017Q4

REPORT INFORMATION
  Report Type: Spontaneous
  Country: US (occurrence: US)
  Receive Date: 20150408
  Receipt Date: 20171109
  Transmission Date: 20180320
  Serious: Yes (Hospitalization, Other)
  Sender: FDA-Public Use
  Company Number: US-BRISTOL-MYERS SQUIBB COMPANY-BMS-2014-007780

PATIENT
  Sex: Male
  Weight: 76.64 kg

DRUGS (7)
  1. ABILIFY [Suspect]
     Active Substance: ARIPIPRAZOLE
     Indication: BIPOLAR I DISORDER
     Dosage: 2 MG, DAILY
     Route: 048
     Dates: start: 20080101, end: 201404
  2. LITHIUM. [Concomitant]
     Active Substance: LITHIUM
     Indication: PRODUCT USED FOR UNKNOWN INDICATION
     Route: 065
  3. ABILIFY [Suspect]
     Active Substance: ARIPIPRAZOLE
     Indication: BIPOLAR DISORDER
     Route: 065
  4. RISPERDAL [Concomitant]
     Active Substance: RISPERIDONE
     Indication: PRODUCT USED FOR UNKNOWN INDICATION
     Route: 065
  5. ZYPREXA [Concomitant]
     Active Substance: OLANZAPINE
     Indication: PRODUCT USED FOR UNKNOWN INDICATION
     Route: 065
  6. LATUDA [Concomitant]
     Active Substance: LURASIDONE HYDROCHLORIDE
     Indication: PRODUCT USED FOR UNKNOWN INDICATION
     Dosage: 1 TAB, QHS
     Route: 048
  7. DEPAKOTE [Concomitant]
     Active Substance: DIVALPROEX SODIUM
     Indication: PRODUCT USED FOR UNKNOWN INDICATION
     Dosage: 2000 MG, QHS
     Route: 048

REACTIONS (28)
  - Gambling disorder [Not Recovered/Not Resolved]
  - Shoplifting [Not Recovered/Not Resolved]
  - Suicide attempt [Not Recovered/Not Resolved]
  - Alcoholism [Unknown]
  - Hand fracture [Unknown]
  - Injury [Unknown]
  - Psychosexual disorder [Unknown]
  - Dysarthria [Unknown]
  - Insomnia [Unknown]
  - Excoriation [Unknown]
  - Tremor [Unknown]
  - Drug dependence [Not Recovered/Not Resolved]
  - Substance abuse [Unknown]
  - Eating disorder [Unknown]
  - Compulsive sexual behaviour [Unknown]
  - Dependence [Unknown]
  - Compulsive shopping [Not Recovered/Not Resolved]
  - Alcohol abuse [Unknown]
  - Prescribed underdose [Unknown]
  - Trichotillomania [Not Recovered/Not Resolved]
  - Anxiety [Unknown]
  - Obsessive-compulsive disorder [Not Recovered/Not Resolved]
  - Suicidal ideation [Not Recovered/Not Resolved]
  - Compulsive hoarding [Not Recovered/Not Resolved]
  - Mental disorder [Unknown]
  - Psychotic disorder [Unknown]
  - Impulsive behaviour [Unknown]
  - Emotional distress [Unknown]
